FAERS Safety Report 10135164 (Version 1)
Quarter: 2014Q2

REPORT INFORMATION
  Report Type: Spontaneous
  Country: GB (occurrence: GB)
  Receive Date: 20140428
  Receipt Date: 20140428
  Transmission Date: 20141212
  Serious: Yes (Disabling)
  Sender: FDA-Public Use
  Company Number: GB-WATSON-2014-08307

PATIENT
  Sex: Female

DRUGS (1)
  1. SIMVASTATIN (UNKNOWN) [Suspect]
     Indication: PRODUCT USED FOR UNKNOWN INDICATION
     Dosage: UNK; TAKEN FOR MANY YEARS
     Route: 065

REACTIONS (1)
  - Neuropathy peripheral [Unknown]
